FAERS Safety Report 17960062 (Version 3)
Quarter: 2020Q3

REPORT INFORMATION
  Report Type: Report from Study
  Country: US (occurrence: US)
  Receive Date: 20200629
  Receipt Date: 20200825
  Transmission Date: 20201103
  Serious: No
  Sender: FDA-Public Use
  Company Number: NVSC2020US183562

PATIENT
  Age: 65 Year
  Sex: Male

DRUGS (1)
  1. COSENTYX [Suspect]
     Active Substance: SECUKINUMAB
     Indication: ANKYLOSING SPONDYLITIS
     Dosage: 150 MG
     Route: 065

REACTIONS (4)
  - Irritable bowel syndrome [Recovering/Resolving]
  - Muscle spasms [Recovering/Resolving]
  - Drug ineffective [Recovering/Resolving]
  - Arthralgia [Recovering/Resolving]
